FAERS Safety Report 7533828-X (Version None)
Quarter: 2011Q2

REPORT INFORMATION
  Report Type: 
  Country: None (occurrence: None)
  Receive Date: 20110608
  Receipt Date: 20060616
  Transmission Date: 20111010
  Serious: Yes (Hospitalization)
  Sender: FDA-Public Use
  Company Number: PHEH2006US07335

PATIENT
  Sex: Male
  Weight: 54.421 kg

DRUGS (3)
  1. CEFTAZIDIME [Concomitant]
     Dosage: UNK
  2. VANCOMYCIN [Concomitant]
     Dosage: UNK
  3. EXJADE [Suspect]
     Dosage: 1000 MG, QD
     Route: 048
     Dates: start: 20060401, end: 20060531

REACTIONS (4)
  - ABDOMINAL PAIN [None]
  - POISONING [None]
  - PYREXIA [None]
  - STAPHYLOCOCCAL INFECTION [None]
